FAERS Safety Report 18891659 (Version 3)
Quarter: 2022Q2

REPORT INFORMATION
  Report Type: Spontaneous
  Country: US (occurrence: US)
  Receive Date: 20210215
  Receipt Date: 20220630
  Transmission Date: 20220721
  Serious: Yes (Other)
  Sender: FDA-Public Use
  Company Number: US-SA-SAC20210212000119

PATIENT
  Sex: Male

DRUGS (2)
  1. ALPROLIX [Suspect]
     Active Substance: EFTRENONACOG ALFA
     Indication: Factor IX deficiency
     Dosage: 2000 IU, QW
     Route: 042
     Dates: start: 20170302
  2. ALPROLIX [Suspect]
     Active Substance: EFTRENONACOG ALFA
     Indication: Factor IX deficiency
     Dosage: 2000 IU, QW
     Route: 042
     Dates: start: 20170302

REACTIONS (3)
  - Haemorrhage [Not Recovered/Not Resolved]
  - Traumatic haemorrhage [Unknown]
  - Fall [Unknown]
